FAERS Safety Report 7596570-5 (Version None)
Quarter: 2011Q3

REPORT INFORMATION
  Report Type: 
  Country: None (occurrence: None)
  Receive Date: 20110708
  Receipt Date: 20110630
  Transmission Date: 20111222
  Serious: Yes (Hospitalization, Other)
  Sender: FDA-Public Use
  Company Number: NL-AMGEN-NLDSP2011029631

PATIENT
  Age: 63 Year
  Sex: Female
  Weight: 64 kg

DRUGS (6)
  1. MTX                                /00113801/ [Concomitant]
     Dosage: UNK
  2. PANTOZOL                           /01263202/ [Concomitant]
     Dosage: UNK UNK, UNK
  3. ENBREL [Suspect]
     Indication: RHEUMATOID ARTHRITIS
     Dosage: 50 MG, WEEKLY
     Dates: start: 20101207, end: 20110301
  4. PREDNISONE [Concomitant]
     Dosage: UNK
  5. VERPAMIL HCL [Concomitant]
     Dosage: UNK
  6. FOLIC ACID [Concomitant]
     Dosage: UNK

REACTIONS (4)
  - URINARY TRACT INFECTION [None]
  - LOWER LIMB FRACTURE [None]
  - MALAISE [None]
  - RESPIRATORY TRACT INFECTION [None]
